FAERS Safety Report 15833417 (Version 1)
Quarter: 2018Q4

REPORT INFORMATION
  Report Type: Spontaneous
  Country: US (occurrence: US)
  Receive Date: 20181221
  Receipt Date: 20181221
  Transmission Date: 20190205
  Serious: No
  Sender: FDA-Public Use
  Company Number: None

PATIENT
  Sex: Female
  Weight: 90.72 kg

DRUGS (2)
  1. ENBREL [Suspect]
     Active Substance: ETANERCEPT
     Indication: RHEUMATOID ARTHRITIS
     Dosage: INJECT 50MG SUBCUTANEOUSLY ONCE  WEEKLY  USING THE AUTO TOUCH DEVICE AS DIRECTED
     Route: 058
     Dates: start: 201707
  2. ENBREL [Suspect]
     Active Substance: ETANERCEPT
     Indication: RHEUMATOID VASCULITIS
     Dosage: INJECT 50MG SUBCUTANEOUSLY ONCE  WEEKLY  USING THE AUTO TOUCH DEVICE AS DIRECTED
     Route: 058
     Dates: start: 201707

REACTIONS (1)
  - Pruritus generalised [None]
